FAERS Safety Report 22341920 (Version 5)
Quarter: 2024Q2

REPORT INFORMATION
  Report Type: Report from Study
  Country: AU (occurrence: AU)
  Receive Date: 20230518
  Receipt Date: 20240429
  Transmission Date: 20240716
  Serious: Yes (Hospitalization)
  Sender: FDA-Public Use
  Company Number: AU-JNJFOC-20230522416

PATIENT
  Age: 89 Year
  Sex: Male
  Weight: 89.1 kg

DRUGS (8)
  1. ABIRATERONE ACETATE [Suspect]
     Active Substance: ABIRATERONE ACETATE
     Indication: Hormone-dependent prostate cancer
     Route: 048
     Dates: start: 20230419, end: 20230501
  2. ABEMACICLIB [Suspect]
     Active Substance: ABEMACICLIB
     Indication: Hormone-dependent prostate cancer
     Route: 065
     Dates: start: 20230419, end: 20230501
  3. PREDNISOLONE [Suspect]
     Active Substance: PREDNISOLONE
     Indication: Hormone-dependent prostate cancer
     Dosage: LAST DOSE WAS RECEIVED ON 02-MAY-2023
     Route: 048
     Dates: start: 20230419, end: 20230501
  4. MIRABEGRON [Concomitant]
     Active Substance: MIRABEGRON
     Indication: Urinary incontinence
     Route: 065
     Dates: start: 2016
  5. NEXIUM [Concomitant]
     Active Substance: ESOMEPRAZOLE MAGNESIUM
     Indication: Gastrooesophageal reflux disease
     Route: 065
     Dates: start: 2012
  6. PRAVASTATIN [Concomitant]
     Active Substance: PRAVASTATIN
     Indication: Hypercholesterolaemia
     Route: 065
     Dates: start: 2020
  7. CANDESARTAN [Concomitant]
     Active Substance: CANDESARTAN
     Indication: Hypertension
     Route: 065
     Dates: start: 2020
  8. MAGNESIUM [Concomitant]
     Active Substance: MAGNESIUM
     Indication: Muscle spasms
     Route: 065
     Dates: start: 2022

REACTIONS (6)
  - Thrombocytopenia [Recovered/Resolved]
  - Nausea [Recovered/Resolved]
  - Vomiting [Recovered/Resolved]
  - Diarrhoea [Recovered/Resolved]
  - Hypotension [Unknown]
  - Decreased appetite [Unknown]

NARRATIVE: CASE EVENT DATE: 20230501
